FAERS Safety Report 16094442 (Version 1)
Quarter: 2019Q1

REPORT INFORMATION
  Report Type: Spontaneous
  Country: US (occurrence: US)
  Receive Date: 20190320
  Receipt Date: 20190320
  Transmission Date: 20190418
  Serious: No
  Sender: FDA-Public Use
  Company Number: US-DRREDDYS-USA/USA/19/0108591

PATIENT
  Sex: Male

DRUGS (2)
  1. NICOTINE. [Suspect]
     Active Substance: NICOTINE
     Indication: SMOKING CESSATION THERAPY
     Route: 062
     Dates: start: 20190311
  2. HABITROL [Suspect]
     Active Substance: NICOTINE
     Indication: SMOKING CESSATION THERAPY
     Route: 062

REACTIONS (5)
  - Treatment noncompliance [Unknown]
  - Inappropriate schedule of product administration [Unknown]
  - Nicotine dependence [Unknown]
  - Product quality issue [Unknown]
  - Drug ineffective [Unknown]
